FAERS Safety Report 20471603 (Version 1)
Quarter: 2022Q1

REPORT INFORMATION
  Report Type: Spontaneous
  Country: US (occurrence: US)
  Receive Date: 20220214
  Receipt Date: 20220214
  Transmission Date: 20220423
  Serious: Yes (Hospitalization)
  Sender: FDA-Public Use
  Company Number: US-SANOFI-00966443

PATIENT
  Age: 59 Year
  Sex: Male

DRUGS (2)
  1. LANTUS SOLOSTAR [Suspect]
     Active Substance: INSULIN GLARGINE
     Indication: Diabetic ketoacidosis
  2. NOVOLOG [Concomitant]
     Active Substance: INSULIN ASPART

REACTIONS (6)
  - Hospitalisation [Unknown]
  - Product dose omission issue [Unknown]
  - Blood glucose increased [Unknown]
  - Visual impairment [Unknown]
  - Liquid product physical issue [Unknown]
  - Product use in unapproved indication [Unknown]
